FAERS Safety Report 9521903 (Version 1)
Quarter: 2013Q1

REPORT INFORMATION
  Report Type: Spontaneous
  Country: US (occurrence: None)
  Receive Date: 20130305
  Receipt Date: 20130305
  Transmission Date: 20140127
  Serious: Yes (Other)
  Sender: FDA-Public Use
  Company Number: 163-21880-12080314

PATIENT
  Age: 57 Year
  Sex: Female
  Weight: 83.01 kg

DRUGS (6)
  1. REVLIMID (LENALIDOMIDE) (CAPSULES) [Suspect]
     Indication: PLASMA CELL MYELOMA
     Dosage: 25 MG, CAPSULE, 21 IN 21 D, PO
     Dates: start: 20110215
  2. CLINDAMYCIN [Concomitant]
  3. IBUPROFEN [Concomitant]
  4. IRON [Concomitant]
  5. MULTIVITAMIN [Concomitant]
  6. POTASSIUM [Concomitant]

REACTIONS (2)
  - Tooth infection [None]
  - Osteomyelitis [None]
